FAERS Safety Report 7065049-1 (Version None)
Quarter: 2010Q4

REPORT INFORMATION
  Report Type: 
  Country: None (occurrence: None)
  Receive Date: 20101027
  Receipt Date: 19900926
  Transmission Date: 20110411
  Serious: Yes (Death, Life-Threatening)
  Sender: FDA-Public Use
  Company Number: US-ROCHE-900201112001

PATIENT
  Age: 34 Year
  Sex: Female

DRUGS (10)
  1. VERSED [Suspect]
     Indication: LIGHT ANAESTHESIA
     Route: 042
     Dates: start: 19900827, end: 19900827
  2. VERSED [Suspect]
     Route: 042
     Dates: start: 19900828, end: 19900828
  3. PEPCID [Concomitant]
     Route: 042
  4. VITAMIN K TAB [Concomitant]
     Route: 058
  5. PITRESSIN [Concomitant]
     Route: 042
  6. FOLATE SODIUM [Concomitant]
     Route: 065
  7. THIAMINE HCL [Concomitant]
     Route: 065
  8. VITAMINS [Concomitant]
     Route: 042
  9. SODIUM TETRADECYL SULFATE [Concomitant]
     Route: 065
     Dates: start: 19900827, end: 19900827
  10. NITROGLYCERIN [Concomitant]
     Route: 042

REACTIONS (2)
  - ANAPHYLACTIC REACTION [None]
  - MULTI-ORGAN FAILURE [None]
